FAERS Safety Report 17464389 (Version 2)
Quarter: 2020Q1

REPORT INFORMATION
  Report Type: Spontaneous
  Country: ES (occurrence: ES)
  Receive Date: 20200226
  Receipt Date: 20200306
  Transmission Date: 20200409
  Serious: Yes (Other)
  Sender: FDA-Public Use
  Company Number: ES-PFIZER INC-2020079875

PATIENT
  Age: 60 Year
  Sex: Female

DRUGS (8)
  1. CANDESARTAN. [Concomitant]
     Active Substance: CANDESARTAN
     Indication: HYPERTENSION
     Dosage: UNK
  2. PALEXIA [Suspect]
     Active Substance: TAPENTADOL HYDROCHLORIDE
     Dosage: 50 MG, 2X/DAY (50 MG EVERY 12 HOURS)
  3. LEVOTHROID [Concomitant]
     Active Substance: LEVOTHYROXINE SODIUM
     Indication: HYPOTHYROIDISM
     Dosage: UNK, (50)
  4. PALEXIA [Suspect]
     Active Substance: TAPENTADOL HYDROCHLORIDE
     Indication: NEURALGIA
     Dosage: 150 MG, 3X/DAY (150 MG EVERY 8 HOURS)
     Dates: start: 2013
  5. PALEXIA [Suspect]
     Active Substance: TAPENTADOL HYDROCHLORIDE
     Dosage: 100 MG, 2X/DAY (100 MG EVERY 12 HOURS)
     Dates: start: 2018
  6. LYRICA [Suspect]
     Active Substance: PREGABALIN
     Dosage: 75 MG, 3X/DAY (75 MG EVERY 8 HOURS)
     Route: 048
     Dates: start: 2018
  7. LYRICA [Suspect]
     Active Substance: PREGABALIN
     Indication: NEURALGIA
     Dosage: 150 MG, 3X/DAY (150 MG EVERY 8 HOURS)
     Route: 048
     Dates: start: 2013
  8. LYRICA [Suspect]
     Active Substance: PREGABALIN
     Dosage: 75 MG, 2X/DAY (75 MG EVERY 12 HOURS)
     Route: 048
     Dates: end: 20200108

REACTIONS (8)
  - Hot flush [Recovered/Resolved]
  - Leukopenia [Recovered/Resolved]
  - Withdrawal syndrome [Unknown]
  - Anxiety [Recovered/Resolved]
  - Viral infection [Recovered/Resolved]
  - Insomnia [Recovered/Resolved]
  - Nausea [Recovered/Resolved]
  - Hyperhidrosis [Recovered/Resolved]

NARRATIVE: CASE EVENT DATE: 201911
